FAERS Safety Report 6325492-2 (Version None)
Quarter: 2009Q3

REPORT INFORMATION
  Report Type: 
  Country: None (occurrence: None)
  Receive Date: 20090824
  Receipt Date: 20090707
  Transmission Date: 20100115
  Serious: No
  Sender: FDA-Public Use
  Company Number: US-ABBOTT-09P-163-0584212-00

PATIENT
  Sex: Female

DRUGS (3)
  1. NIASPAN [Suspect]
     Indication: BLOOD TRIGLYCERIDES INCREASED
     Dates: start: 20081201, end: 20090201
  2. NIASPAN [Suspect]
     Dates: start: 20090629, end: 20090705
  3. CLINIAC [Concomitant]
     Indication: ROSACEA
     Dosage: DAILY
     Route: 061

REACTIONS (3)
  - FATIGUE [None]
  - HEADACHE [None]
  - SKIN BURNING SENSATION [None]
